FAERS Safety Report 12704345 (Version 3)
Quarter: 2016Q3

REPORT INFORMATION
  Report Type: Spontaneous
  Country: CN (occurrence: CN)
  Receive Date: 20160831
  Receipt Date: 20160913
  Transmission Date: 20161109
  Serious: Yes (Other)
  Sender: FDA-Public Use
  Company Number: CN-JNJFOC-20160822975

PATIENT

DRUGS (1)
  1. PALIPERIDONE ER [Suspect]
     Active Substance: PALIPERIDONE
     Indication: SCHIZOPHRENIA
     Dosage: 3-12 MG A DAY
     Route: 048

REACTIONS (15)
  - Extrapyramidal disorder [Unknown]
  - Insomnia [Unknown]
  - Blood prolactin abnormal [Unknown]
  - Constipation [Unknown]
  - Inappropriate affect [Unknown]
  - Cardiac arrest [Unknown]
  - Weight increased [Unknown]
  - Depression [Unknown]
  - Akathisia [Unknown]
  - Dizziness [Unknown]
  - Nausea [Unknown]
  - Anxiety [Unknown]
  - Dysphoria [Unknown]
  - Amenorrhoea [Unknown]
  - Headache [Unknown]
